FAERS Safety Report 5125576-0 (Version None)
Quarter: 2006Q4

REPORT INFORMATION
  Report Type: 
  Country: None (occurrence: None)
  Receive Date: 20061012
  Receipt Date: 20060905
  Transmission Date: 20070319
  Serious: Yes (Other)
  Sender: FDA-Public Use
  Company Number: JP-SP-2006-02350

PATIENT
  Age: 76 Year
  Sex: Male

DRUGS (4)
  1. IMMUCYST [Suspect]
     Indication: BLADDER CANCER
     Route: 043
     Dates: start: 20051110, end: 20051208
  2. CEFDINIR [Concomitant]
     Route: 048
     Dates: start: 20051110, end: 20051215
  3. TRANEXAMIC ACID [Concomitant]
     Route: 048
     Dates: start: 20051110, end: 20051215
  4. TROXIPIDE [Concomitant]
     Route: 048
     Dates: start: 20051110, end: 20051215

REACTIONS (3)
  - DYSURIA [None]
  - HYPERTONIC BLADDER [None]
  - POLLAKIURIA [None]
